FAERS Safety Report 11151051 (Version 1)
Quarter: 2015Q2

REPORT INFORMATION
  Report Type: Spontaneous
  Country: DK (occurrence: None)
  Receive Date: 20150528
  Receipt Date: 20150528
  Transmission Date: 20150821
  Serious: Yes (Other)
  Sender: FDA-Public Use
  Company Number: DE-H14001-15-00770

PATIENT
  Age: 46 Year
  Sex: Female

DRUGS (4)
  1. IRINOTECAN (IRINOTECAN) (UNKNOWN) (IRINOTECAN) [Suspect]
     Active Substance: IRINOTECAN
     Indication: DUCTAL ADENOCARCINOMA OF PANCREAS
     Dosage: ON DAY 1. CYCLES WERE EVERY 2 WEEKS.
  2. LEUCOVORIN (CALCIUM FOLINATE) (UNKNOWN) (CALCIUM FOLINATE) [Suspect]
     Active Substance: LEUCOVORIN
     Indication: DUCTAL ADENOCARCINOMA OF PANCREAS
     Dosage: ON DAY 1. CYCLES WERE EVERY 2 WEEKS.
  3. OXALIPLATIN (OXALIPLATIN) (UNKNOWN) (OXALIPLATIN) [Suspect]
     Active Substance: OXALIPLATIN
     Indication: DUCTAL ADENOCARCINOMA OF PANCREAS
     Dosage: ON DAY 1. CYCLES WERE EVERY 2 WEEKS.
  4. 5-FLUOROURACIL [Suspect]
     Active Substance: FLUOROURACIL
     Indication: DUCTAL ADENOCARCINOMA OF PANCREAS

REACTIONS (4)
  - Fatigue [None]
  - Neuropathy peripheral [None]
  - Neutropenia [None]
  - Diarrhoea [None]
